FAERS Safety Report 7897351-5 (Version None)
Quarter: 2011Q4

REPORT INFORMATION
  Report Type: 
  Country: None (occurrence: None)
  Receive Date: 20111107
  Receipt Date: 20111102
  Transmission Date: 20120403
  Serious: Yes (Other)
  Sender: FDA-Public Use
  Company Number: PHEH2011US05464

PATIENT
  Sex: Female

DRUGS (7)
  1. SYNTHROID [Concomitant]
     Dosage: UNK UKN, UNK
  2. RECLAST [Suspect]
     Indication: OSTEOPOROSIS
     Dosage: UNK UKN, UNK
     Route: 042
     Dates: start: 20110402
  3. LIPITOR [Concomitant]
  4. CITALOPRAM [Concomitant]
  5. POTASSIUM [Concomitant]
  6. VITAMINS NOS [Concomitant]
     Dosage: UNK UKN, UNK
  7. CALCIUM [Concomitant]
     Dosage: UNK UKN, UNK

REACTIONS (12)
  - BONE PAIN [None]
  - HYPOAESTHESIA [None]
  - NAUSEA [None]
  - DYSPNOEA [None]
  - SOMNOLENCE [None]
  - HEADACHE [None]
  - PARAESTHESIA [None]
  - PAIN IN EXTREMITY [None]
  - JOINT SWELLING [None]
  - PAIN [None]
  - FEELING COLD [None]
  - ARTHRALGIA [None]
